FAERS Safety Report 18141258 (Version 1)
Quarter: 2020Q3

REPORT INFORMATION
  Report Type: Spontaneous
  Country: BR (occurrence: BR)
  Receive Date: 20200812
  Receipt Date: 20200812
  Transmission Date: 20201103
  Serious: Yes (Other)
  Sender: FDA-Public Use
  Company Number: NVSC2020BR221056

PATIENT
  Sex: Male

DRUGS (4)
  1. EVEROLIMUS. [Concomitant]
     Active Substance: EVEROLIMUS
     Indication: PRODUCT USED FOR UNKNOWN INDICATION
     Route: 065
  2. SANDOSTATIN LAR DEPOT [Suspect]
     Active Substance: OCTREOTIDE ACETATE
  3. SANDOSTATIN LAR DEPOT [Suspect]
     Active Substance: OCTREOTIDE ACETATE
     Indication: PANCREATIC NEUROENDOCRINE TUMOUR METASTATIC
     Dosage: 30 MG (EVERY 28 DAYS) QMO
     Route: 030
     Dates: start: 201603
  4. SANDOSTATIN LAR DEPOT [Suspect]
     Active Substance: OCTREOTIDE ACETATE

REACTIONS (7)
  - Prostate cancer [Unknown]
  - Malignant neoplasm progression [Unknown]
  - Cholelithiasis [Unknown]
  - Gene mutation [Unknown]
  - Second primary malignancy [Unknown]
  - Liver disorder [Unknown]
  - Cholecystitis [Unknown]
